FAERS Safety Report 17744914 (Version 3)
Quarter: 2025Q2

REPORT INFORMATION
  Report Type: Report from Study
  Country: AE (occurrence: AE)
  Receive Date: 20200505
  Receipt Date: 20250620
  Transmission Date: 20250717
  Serious: Yes (Hospitalization, Other)
  Sender: TAKEDA
  Company Number: AE-TAKEDA-2020TUS020714

PATIENT

DRUGS (1)
  1. VEDOLIZUMAB [Suspect]
     Active Substance: VEDOLIZUMAB
     Indication: Colitis ulcerative
     Dosage: 300 MILLIGRAM, Q4WEEKS
     Dates: start: 20190203

REACTIONS (8)
  - Appendix disorder [Unknown]
  - Crohn^s disease [Unknown]
  - Testis cancer [Unknown]
  - Nasal obstruction [Unknown]
  - Mouth breathing [Unknown]
  - Snoring [Unknown]
  - Sleep disorder [Unknown]
  - Obstructive sleep apnoea syndrome [Unknown]

NARRATIVE: CASE EVENT DATE: 20200412
